FAERS Safety Report 12265446 (Version 3)
Quarter: 2016Q3

REPORT INFORMATION
  Report Type: Spontaneous
  Country: JP (occurrence: JP)
  Receive Date: 20160413
  Receipt Date: 20160714
  Transmission Date: 20161109
  Serious: Yes (Hospitalization, Disabling, Other)
  Sender: FDA-Public Use
  Company Number: JP-PFIZER INC-2016199652

PATIENT
  Age: 36 Year
  Sex: Female
  Weight: 49 kg

DRUGS (11)
  1. PROGRAF [Suspect]
     Active Substance: TACROLIMUS\TACROLIMUS ANHYDROUS
     Indication: IMMUNOSUPPRESSANT DRUG THERAPY
     Dosage: UNK
     Route: 065
  2. EVEROLIMUS [Suspect]
     Active Substance: EVEROLIMUS
     Indication: IMMUNOSUPPRESSANT DRUG THERAPY
     Dosage: UNK
     Route: 065
     Dates: start: 20140303, end: 20150115
  3. ATORVASTATIN CALCIUM. [Suspect]
     Active Substance: ATORVASTATIN CALCIUM
     Dosage: 5 MG, 1X/DAY
     Route: 065
     Dates: end: 2011
  4. MIZORIBINE [Suspect]
     Active Substance: MIZORIBINE
     Indication: IMMUNOSUPPRESSANT DRUG THERAPY
     Dosage: UNK
  5. ATORVASTATIN CALCIUM. [Suspect]
     Active Substance: ATORVASTATIN CALCIUM
     Dosage: 20 MG, 1X/DAY
     Route: 065
     Dates: start: 2014, end: 20150115
  6. PROGRAF [Suspect]
     Active Substance: TACROLIMUS\TACROLIMUS ANHYDROUS
     Dosage: UNK
     Route: 065
     Dates: start: 2015
  7. BASILIXIMAB [Concomitant]
     Active Substance: BASILIXIMAB
     Dosage: UNK
     Dates: start: 20130415, end: 20140303
  8. VALPROATE [Concomitant]
     Active Substance: VALPROIC ACID
     Dosage: UNK
  9. ATORVASTATIN CALCIUM. [Suspect]
     Active Substance: ATORVASTATIN CALCIUM
     Dosage: 10 MG, 1X/DAY
     Route: 065
     Dates: start: 2011, end: 2014
  10. PROGRAF [Suspect]
     Active Substance: TACROLIMUS\TACROLIMUS ANHYDROUS
     Dosage: UNK
     Route: 065
  11. PREDNISOLONE. [Suspect]
     Active Substance: PREDNISOLONE
     Indication: IMMUNOSUPPRESSANT DRUG THERAPY
     Dosage: UNK

REACTIONS (6)
  - Nephropathy toxic [Unknown]
  - Hepatic steatosis [Unknown]
  - Depression [Unknown]
  - Neurosis [Unknown]
  - Type 2 diabetes mellitus [Unknown]
  - Osteonecrosis [Unknown]
